FAERS Safety Report 9899356 (Version 2)
Quarter: 2014Q1

REPORT INFORMATION
  Report Type: Spontaneous
  Country: FR (occurrence: FR)
  Receive Date: 20140214
  Receipt Date: 20140214
  Transmission Date: 20141002
  Serious: Yes (Other)
  Sender: FDA-Public Use
  Company Number: FR-ABBVIE-13P-056-1162207-00

PATIENT
  Age: 28 Year
  Sex: Female
  Weight: 60 kg

DRUGS (3)
  1. HUMIRA [Suspect]
     Indication: CROHN^S DISEASE
     Dates: start: 20130115
  2. HUMIRA [Suspect]
  3. PENTASA [Concomitant]
     Indication: CROHN^S DISEASE
     Route: 048
     Dates: end: 201308

REACTIONS (4)
  - Conjunctivitis [Not Recovered/Not Resolved]
  - Keratitis [Unknown]
  - Psoriasis [Recovering/Resolving]
  - Rhinitis [Not Recovered/Not Resolved]
